FAERS Safety Report 6296585-3 (Version None)
Quarter: 2009Q3

REPORT INFORMATION
  Report Type: 
  Country: None (occurrence: None)
  Receive Date: 20090804
  Receipt Date: 20090730
  Transmission Date: 20100115
  Serious: Yes (Hospitalization)
  Sender: FDA-Public Use
  Company Number: DE-MERCK-0811DEU00126M

PATIENT
  Age: 25 Year
  Sex: Female

DRUGS (5)
  1. SINGULAIR [Suspect]
     Indication: ASTHMA
     Route: 048
     Dates: start: 20070901
  2. FLUTICASONE PROPIONATE AND SALMETEROL XINAFOATE [Concomitant]
  3. BUDESONIDE [Concomitant]
  4. TERBUTALINE SULFATE [Concomitant]
     Route: 065
  5. PREDNISOLONE [Concomitant]
     Route: 065

REACTIONS (2)
  - DRUG EXPOSURE DURING PREGNANCY [None]
  - HELLP SYNDROME [None]
